FAERS Safety Report 16169504 (Version 1)
Quarter: 2019Q2

REPORT INFORMATION
  Report Type: Spontaneous
  Country: FR (occurrence: FR)
  Receive Date: 20190408
  Receipt Date: 20190408
  Transmission Date: 20190711
  Serious: Yes (Hospitalization)
  Sender: FDA-Public Use
  Company Number: FR-MYLANLABS-2019M1032003

PATIENT
  Age: 86 Year
  Sex: Female

DRUGS (12)
  1. PAROXETINE. [Suspect]
     Active Substance: PAROXETINE
     Indication: DEMENTIA ALZHEIMER^S TYPE
     Dosage: 10 MILLIGRAM, QD
     Route: 048
     Dates: end: 20190227
  2. MIANSERINE                         /00390602/ [Suspect]
     Active Substance: MIANSERIN HYDROCHLORIDE
     Indication: DEMENTIA ALZHEIMER^S TYPE
     Dosage: 30 MILLIGRAM, QD
     Route: 048
     Dates: end: 20190301
  3. SPIRIVA [Suspect]
     Active Substance: TIOTROPIUM BROMIDE MONOHYDRATE
     Indication: ASTHMA
     Dosage: 2 DOSAGE FORM, QD
     Route: 055
     Dates: end: 20190227
  4. ACIDE FOLIQUE [Concomitant]
     Active Substance: FOLIC ACID
  5. SERESTA [Suspect]
     Active Substance: OXAZEPAM
     Indication: DEMENTIA ALZHEIMER^S TYPE
     Dosage: 0.5 DOSAGE FORM, QD
     Route: 048
  6. LERCANIDIPINE [Suspect]
     Active Substance: LERCANIDIPINE
     Indication: HYPERTENSION
     Dosage: 0.5 DOSAGE FORM, QD
     Route: 048
  7. CRESTOR [Suspect]
     Active Substance: ROSUVASTATIN CALCIUM
     Indication: DYSLIPIDAEMIA
     Dosage: 1 DOSAGE FORM, QD
     Route: 048
     Dates: end: 20190227
  8. FORSTEO [Suspect]
     Active Substance: TERIPARATIDE
     Indication: OSTEOPOROSIS
     Dosage: 1 DOSAGE FORM, QD
     Route: 058
     Dates: end: 20190227
  9. KARDEGIC [Concomitant]
     Active Substance: ASPIRIN DL-LYSINE
  10. SYMBICORT [Suspect]
     Active Substance: BUDESONIDE\FORMOTEROL FUMARATE DIHYDRATE
     Indication: ASTHMA
     Dosage: 1 DOSAGE FORM, QD
     Route: 055
     Dates: end: 20190227
  11. DOLIPRANE [Concomitant]
     Active Substance: ACETAMINOPHEN
  12. PANTOPRAZOLE [Concomitant]
     Active Substance: PANTOPRAZOLE

REACTIONS (2)
  - Fall [Recovered/Resolved]
  - Orthostatic hypotension [Recovered/Resolved]

NARRATIVE: CASE EVENT DATE: 201902
